FAERS Safety Report 14127120 (Version 1)
Quarter: 2017Q4

REPORT INFORMATION
  Report Type: Report from Study
  Country: IN (occurrence: IN)
  Receive Date: 20171026
  Receipt Date: 20171026
  Transmission Date: 20180321
  Serious: Yes (Other)
  Sender: FDA-Public Use
  Company Number: IN-CIPLA (EU) LIMITED-2017IN18558

PATIENT

DRUGS (4)
  1. OXALIPLATIN. [Suspect]
     Active Substance: OXALIPLATIN
     Indication: ADENOCARCINOMA
     Dosage: 85 MG/M2, GIVEN AS A 46-HOUR CONTINUOUS INFUSION, EVERY 2 WEEKS
     Route: 065
  2. IRINOTECAN [Suspect]
     Active Substance: IRINOTECAN
     Indication: ADENOCARCINOMA
     Dosage: 150 MG/M2, GIVEN AS A 46-HOUR CONTINUOUS INFUSION, EVERY 2 WEEKS
     Route: 065
  3. FLUOROURACIL. [Suspect]
     Active Substance: FLUOROURACIL
     Indication: ADENOCARCINOMA
     Dosage: 2400 MG/M2, GIVEN AS A 46-HOUR CONTINUOUS INFUSION, EVERY 2 WEEKS
     Route: 065
  4. LEUCOVORIN. [Suspect]
     Active Substance: LEUCOVORIN
     Indication: ADENOCARCINOMA
     Dosage: 400 MG/M2, GIVEN AS A 46-HOUR CONTINUOUS INFUSION, EVERY 2 WEEKS
     Route: 065

REACTIONS (1)
  - Therapy partial responder [Unknown]
